FAERS Safety Report 6452477 (Version 3)
Quarter: 2018Q4

REPORT INFORMATION
  Report Type: Spontaneous
  Country: IT (occurrence: IT)
  Receive Date: 20071026
  Receipt Date: 20181204
  Transmission Date: 20190205
  Serious: Yes (Life-Threatening)
  Sender: FDA-Public Use
  Company Number: IT-AVENTIS-200714914EU

PATIENT
  Age: 81 Year
  Sex: Female

DRUGS (5)
  1. LASIX [Interacting]
     Active Substance: FUROSEMIDE
     Indication: ESSENTIAL HYPERTENSION
     Dosage: 25 MG, QD
     Route: 048
     Dates: start: 20060930, end: 20071012
  2. VOLTAREN [DICLOFENAC] [Concomitant]
     Active Substance: DICLOFENAC SODIUM
     Indication: OSTEOARTHRITIS
     Dosage: 100 MG, UNK
     Route: 048
  3. ATENOLOL/CHLORTALIDONE [Interacting]
     Active Substance: ATENOLOL\CHLORTHALIDONE
     Indication: ESSENTIAL HYPERTENSION
     Dosage: 125 MG, QD
     Route: 048
     Dates: start: 20060930, end: 20071012
  4. KARVEA TABS [Suspect]
     Active Substance: IRBESARTAN
     Indication: ESSENTIAL HYPERTENSION
     Dosage: 300 MG, QD
     Route: 048
     Dates: start: 20060731, end: 20071012
  5. NORVASC [Concomitant]
     Active Substance: AMLODIPINE BESYLATE
     Indication: ESSENTIAL HYPERTENSION
     Dosage: 5 MG, UNK
     Route: 048

REACTIONS (3)
  - Drug interaction [Unknown]
  - Hypovolaemic shock [Not Recovered/Not Resolved]
  - Acute kidney injury [Recovering/Resolving]

NARRATIVE: CASE EVENT DATE: 20071010
